FAERS Safety Report 4786579-9 (Version None)
Quarter: 2005Q3

REPORT INFORMATION
  Report Type: 
  Country: None (occurrence: None)
  Receive Date: 20050927
  Receipt Date: 20050606
  Transmission Date: 20060218
  Serious: No
  Sender: FDA-Public Use
  Company Number: USA050699726

PATIENT
  Age: 27 Year
  Sex: Male

DRUGS (2)
  1. STRATTERA [Suspect]
     Indication: DISTURBANCE IN ATTENTION
     Dosage: 40 MG/2 DAY
  2. TRILEPTAL [Concomitant]

REACTIONS (1)
  - SOMNOLENCE [None]
